FAERS Safety Report 22938195 (Version 4)
Quarter: 2023Q4

REPORT INFORMATION
  Report Type: Other
  Country: ZA (occurrence: None)
  Receive Date: 20230913
  Receipt Date: 20231130
  Transmission Date: 20240109
  Serious: Yes (Other)
  Sender: FDA-Public Use
  Company Number: ZA-ROCHE-3415647

PATIENT
  Age: 51 Year
  Sex: Female

DRUGS (1)
  1. OCREVUS [Suspect]
     Active Substance: OCRELIZUMAB
     Indication: Multiple sclerosis
     Dosage: THERAFTER 600MG EVERY 6 MONTHS
     Route: 041
     Dates: start: 20230328

REACTIONS (3)
  - Demyelination [Unknown]
  - Spinal stenosis [Unknown]
  - Spinal osteoarthritis [Unknown]
